FAERS Safety Report 10736524 (Version 1)
Quarter: 2015Q1

REPORT INFORMATION
  Report Type: Spontaneous
  Country: DK (occurrence: DK)
  Receive Date: 20150126
  Receipt Date: 20150126
  Transmission Date: 20150721
  Serious: Yes (Hospitalization)
  Sender: FDA-Public Use
  Company Number: DK-ASTRAZENECA-2015SE05098

PATIENT
  Age: 12571 Day
  Sex: Male

DRUGS (1)
  1. CARBOCAINE [Suspect]
     Active Substance: MEPIVACAINE HYDROCHLORIDE
     Indication: ANALGESIC THERAPY
     Dosage: STRENGTH: 10 MG/ML, DOSAGE: 5 ML/0.5 % ADMINISTERED AS SINGLE DOSE
     Route: 014
     Dates: start: 20141217

REACTIONS (5)
  - Dizziness postural [Recovering/Resolving]
  - Chills [Recovering/Resolving]
  - Pallor [Recovering/Resolving]
  - Presyncope [Recovering/Resolving]
  - Asthenia [Recovering/Resolving]

NARRATIVE: CASE EVENT DATE: 20141217
